FAERS Safety Report 8961191 (Version 1)
Quarter: 2012Q4

REPORT INFORMATION
  Report Type: 
  Country: FR (occurrence: FR)
  Receive Date: 20121212
  Receipt Date: 20121212
  Transmission Date: 20130627
  Serious: Yes (Hospitalization)
  Sender: FDA-Public Use
  Company Number: FR-GLAXOSMITHKLINE-B0849565A

PATIENT
  Age: 69 Year
  Sex: Male

DRUGS (12)
  1. SERETIDE [Suspect]
     Indication: CHRONIC OBSTRUCTIVE PULMONARY DISEASE
     Route: 055
  2. PREVISCAN [Suspect]
     Indication: PROPHYLAXIS
     Route: 048
  3. COAPROVEL [Suspect]
     Indication: HYPERTENSION
     Dosage: 1UNIT Per day
     Route: 048
  4. LASILIX [Suspect]
     Indication: HYPERTENSION
     Dosage: 40MG Per day
     Route: 048
  5. DALACINE [Suspect]
     Indication: LUNG INFECTION
     Dosage: 600MG Four times per day
     Route: 042
     Dates: start: 20120612, end: 20120625
  6. CLAMOXYL IV [Suspect]
     Indication: LUNG INFECTION
     Route: 042
     Dates: start: 20120612, end: 20120625
  7. INEXIUM [Suspect]
     Indication: PRODUCT USED FOR UNKNOWN INDICATION
     Dosage: 20MG Per day
     Route: 048
     Dates: start: 20120521, end: 20120620
  8. VANCOCINE [Suspect]
     Indication: LUNG INFECTION
     Dosage: 500MG Four times per day
     Route: 042
     Dates: start: 20120605, end: 20120615
  9. TAZOCILLINE [Suspect]
     Indication: LUNG INFECTION
     Route: 042
     Dates: start: 20120605, end: 20120615
  10. FLAGYL [Suspect]
     Indication: LUNG INFECTION
     Dosage: 500MG Three times per day
     Route: 042
     Dates: start: 20120605, end: 20120615
  11. ROCEPHINE [Suspect]
     Indication: PRODUCT USED FOR UNKNOWN INDICATION
     Route: 042
     Dates: start: 20120528, end: 20120607
  12. DIFFU K [Concomitant]
     Indication: HYPOKALAEMIA
     Dosage: 1UNIT Twice per day
     Route: 048
     Dates: start: 20120521, end: 20120612

REACTIONS (1)
  - Agranulocytosis [Recovered/Resolved]
